FAERS Safety Report 5900977-9 (Version None)
Quarter: 2008Q3

REPORT INFORMATION
  Report Type: 
  Country: None (occurrence: None)
  Receive Date: 20080924
  Receipt Date: 20080917
  Transmission Date: 20090109
  Serious: Yes (Hospitalization)
  Sender: FDA-Public Use
  Company Number: 2008SP019259

PATIENT
  Sex: Female

DRUGS (2)
  1. TEMODAL [Suspect]
     Indication: BRAIN NEOPLASM
     Dosage: 75 MG/M2; QD; PO
     Route: 048
  2. CORTICOSTEROID NOS (CORTICOSTEROID NOS) [Suspect]
     Indication: BRAIN NEOPLASM

REACTIONS (5)
  - HAEMATOTOXICITY [None]
  - KETOACIDOSIS [None]
  - LUNG DISORDER [None]
  - NEUTROPENIA [None]
  - THROMBOCYTOPENIA [None]
